FAERS Safety Report 16594825 (Version 1)
Quarter: 2019Q3

REPORT INFORMATION
  Report Type: Other
  Country: US (occurrence: US)
  Receive Date: 20190718
  Receipt Date: 20190718
  Transmission Date: 20191004
  Serious: No
  Sender: FDA-Public Use
  Company Number: US-SWEDISH ORPHAN BIOVITRUM-2019US0186

PATIENT
  Sex: Male

DRUGS (5)
  1. RESTORIL [Concomitant]
     Active Substance: TEMAZEPAM
  2. HYDROCODONE [Concomitant]
     Active Substance: HYDROCODONE
  3. LEXAPRO [Concomitant]
     Active Substance: ESCITALOPRAM OXALATE
  4. KINERET [Suspect]
     Active Substance: ANAKINRA
     Route: 058
  5. MS CONTIN [Concomitant]
     Active Substance: MORPHINE SULFATE

REACTIONS (1)
  - Urticaria [Not Recovered/Not Resolved]
